FAERS Safety Report 6850914-8 (Version None)
Quarter: 2010Q3

REPORT INFORMATION
  Report Type: 
  Country: None (occurrence: None)
  Receive Date: 20100716
  Receipt Date: 20071227
  Transmission Date: 20110219
  Serious: No
  Sender: FDA-Public Use
  Company Number: US-PFIZER INC-2007090529

PATIENT
  Sex: Male
  Weight: 83.9 kg

DRUGS (3)
  1. CHANTIX [Suspect]
     Indication: SMOKING CESSATION THERAPY
     Dates: start: 20071001
  2. ACIPHEX [Concomitant]
     Indication: HIATUS HERNIA
  3. VITAMINS [Concomitant]

REACTIONS (5)
  - BACK PAIN [None]
  - NECK PAIN [None]
  - NERVOUSNESS [None]
  - PAIN IN EXTREMITY [None]
  - TREMOR [None]
